FAERS Safety Report 12557463 (Version 2)
Quarter: 2016Q3

REPORT INFORMATION
  Report Type: Spontaneous
  Country: PL (occurrence: PL)
  Receive Date: 20160714
  Receipt Date: 20160725
  Transmission Date: 20161109
  Serious: Yes (Other)
  Sender: FDA-Public Use
  Company Number: PL-BAYER-2016-134775

PATIENT
  Age: 8 Year
  Sex: Male

DRUGS (3)
  1. ASPIRIN. [Suspect]
     Active Substance: ASPIRIN
     Indication: KAWASAKI^S DISEASE
     Dosage: 50 MG/KG, QD
  2. ASPIRIN. [Suspect]
     Active Substance: ASPIRIN
     Indication: KAWASAKI^S DISEASE
     Dosage: 5 MG/KG, UNK
  3. CLARITHROMYCIN. [Concomitant]
     Active Substance: CLARITHROMYCIN

REACTIONS (6)
  - Hepatic enzyme increased [Recovered/Resolved]
  - Prothrombin level decreased [Recovered/Resolved]
  - Platelet count decreased [Recovered/Resolved]
  - Ecchymosis [None]
  - Off label use [None]
  - Vomiting [None]
